FAERS Safety Report 4601543-8 (Version None)
Quarter: 2005Q1

REPORT INFORMATION
  Report Type: 
  Country: None (occurrence: None)
  Receive Date: 20050127
  Receipt Date: 20040901
  Transmission Date: 20050727
  Serious: Yes (Hospitalization)
  Sender: FDA-Public Use
  Company Number: 200416666US

PATIENT
  Age: 75 Year

DRUGS (2)
  1. AMARYL [Suspect]
  2. REMINYL [Suspect]

REACTIONS (1)
  - HYPOGLYCAEMIA [None]
